FAERS Safety Report 5979389-8 (Version None)
Quarter: 2008Q4

REPORT INFORMATION
  Report Type: 
  Country: None (occurrence: None)
  Receive Date: 20081204
  Receipt Date: 20081121
  Transmission Date: 20090506
  Serious: Yes (Hospitalization)
  Sender: FDA-Public Use
  Company Number: US-AVENTIS-200718353US

PATIENT
  Sex: Female

DRUGS (13)
  1. KETEK [Suspect]
     Dosage: DOSE: 5 DAY DOSE PK AS DIRECTED
     Route: 048
     Dates: start: 20050201, end: 20050201
  2. KETEK [Suspect]
     Dosage: DOSE: 5 DAY DOSE PK AS DIRECTED
     Route: 048
     Dates: start: 20060201, end: 20060201
  3. KETEK [Suspect]
     Indication: BRONCHITIS
     Dosage: DOSE: 5 DAY DOSE PK AS DIRECTED
     Route: 048
     Dates: start: 20050201, end: 20050201
  4. KETEK [Suspect]
     Dosage: DOSE: 5 DAY DOSE PK AS DIRECTED
     Route: 048
     Dates: start: 20060201, end: 20060201
  5. ERYTHROMYCIN [Suspect]
     Route: 048
     Dates: start: 20050223, end: 20050201
  6. D-METHORPHAN [Suspect]
     Dosage: DOSE: 1 TSP PRN
     Route: 048
     Dates: start: 20060213
  7. D-METHORPHAN [Suspect]
     Dosage: DOSE: 1 TSP PRN
     Route: 048
     Dates: start: 20060213
  8. ZITHROMAX [Suspect]
  9. UNKNOWN DRUGS [Suspect]
  10. HYDROCODONE/GUAIFENESIN [Concomitant]
     Dosage: DOSE: 1 TSP PRN
     Dates: start: 20050308
  11. TEQUIN [Concomitant]
     Route: 048
     Dates: start: 20050308
  12. URSO FORTE [Concomitant]
     Route: 048
     Dates: start: 20060512
  13. URSO FORTE [Concomitant]
     Route: 048
     Dates: start: 20060501

REACTIONS (20)
  - ASCITES [None]
  - BILIARY CIRRHOSIS PRIMARY [None]
  - BLOOD ALBUMIN DECREASED [None]
  - BONE DISORDER [None]
  - DYSPNOEA [None]
  - EOSINOPHIL COUNT INCREASED [None]
  - EROSIVE OESOPHAGITIS [None]
  - FAECES PALE [None]
  - FATIGUE [None]
  - GASTROOESOPHAGEAL REFLUX DISEASE [None]
  - HEPATIC ENCEPHALOPATHY [None]
  - HEPATIC FAILURE [None]
  - IRON DEFICIENCY ANAEMIA [None]
  - LIVER DISORDER [None]
  - MENTAL STATUS CHANGES [None]
  - PLEURAL EFFUSION [None]
  - PORTAL HYPERTENSION [None]
  - SPLENOMEGALY [None]
  - VARICES OESOPHAGEAL [None]
  - WEIGHT DECREASED [None]
